FAERS Safety Report 4468374-3 (Version None)
Quarter: 2004Q4

REPORT INFORMATION
  Report Type: 
  Country: None (occurrence: None)
  Receive Date: 20041007
  Receipt Date: 20041006
  Transmission Date: 20050328
  Serious: Yes (Other)
  Sender: FDA-Public Use
  Company Number: US-GLAXOSMITHKLINE-A0528776A

PATIENT
  Age: 65 Year
  Sex: Male

DRUGS (1)
  1. WELLBUTRIN [Suspect]
     Indication: DEPRESSION
     Dosage: 225MG PER DAY
     Route: 048

REACTIONS (3)
  - ANXIETY [None]
  - MAJOR DEPRESSION [None]
  - POLYURIA [None]
